FAERS Safety Report 21475501 (Version 1)
Quarter: 2022Q4

REPORT INFORMATION
  Report Type: Spontaneous
  Country: CN (occurrence: CN)
  Receive Date: 20221019
  Receipt Date: 20221019
  Transmission Date: 20230112
  Serious: Yes (Other)
  Sender: FDA-Public Use
  Company Number: None

PATIENT
  Age: 67 Year
  Sex: Female
  Weight: 55 kg

DRUGS (4)
  1. CYCLOPHOSPHAMIDE [Suspect]
     Active Substance: CYCLOPHOSPHAMIDE
     Indication: Breast cancer female
     Dosage: AT 16: 50, 0.9 G, QD, DILUTED WITH 0.9% SODIUM CHLORIDE 500 ML, SECOND TARGETED THERAPY
     Route: 042
     Dates: start: 20221008, end: 20221008
  2. EPIRUBICIN HYDROCHLORIDE [Suspect]
     Active Substance: EPIRUBICIN HYDROCHLORIDE
     Indication: Breast cancer female
     Dosage: AT 14: 52 120 MG, DILUTED WITH 0.9% SODIUM CHLORIDE 500 ML, SECOND TARGETED THERAPY
     Route: 042
     Dates: start: 20221008, end: 20221008
  3. SODIUM CHLORIDE [Suspect]
     Active Substance: SODIUM CHLORIDE
     Indication: Vehicle solution use
     Dosage: AT 16: 50, 500 ML, QD, DILUTED IN CYCLOPHOSPHAMIDE 0.9 G, SECOND TARGETED THERAPY
     Route: 042
     Dates: start: 20221008, end: 20221008
  4. SODIUM CHLORIDE [Suspect]
     Active Substance: SODIUM CHLORIDE
     Dosage: AT 14: 52, 500 ML, QD, DILUTED IN EPIRUBICIN HYDROCHLORIDE 120 MG, SECOND TARGETED THERAPY
     Route: 042
     Dates: start: 20221008, end: 20221008

REACTIONS (3)
  - Abdominal distension [Recovering/Resolving]
  - Nausea [Recovering/Resolving]
  - Vomiting [Recovering/Resolving]

NARRATIVE: CASE EVENT DATE: 20221009
